FAERS Safety Report 9721417 (Version 1)
Quarter: 2013Q4

REPORT INFORMATION
  Report Type: Spontaneous
  Country: DK (occurrence: DK)
  Receive Date: 20131129
  Receipt Date: 20131129
  Transmission Date: 20140711
  Serious: Yes (Other)
  Sender: FDA-Public Use
  Company Number: PHHY2013DK137912

PATIENT
  Age: 78 Year
  Sex: Male

DRUGS (9)
  1. VOLTAREN OPHTA [Suspect]
     Indication: PREOPERATIVE CARE
     Route: 047
  2. CYCLOPENTOLATE HCL [Suspect]
     Indication: PREOPERATIVE CARE
     Route: 047
  3. BSS [Suspect]
     Indication: CATARACT OPERATION
     Dosage: ONCE/SINGLE
     Route: 031
     Dates: start: 20131111, end: 20131111
  4. BSS [Suspect]
     Indication: OFF LABEL USE
  5. MYDRIACYL [Suspect]
     Dosage: UNK UKN, UNK
  6. BETADINE [Suspect]
     Indication: PREOPERATIVE CARE
     Route: 047
  7. OXYBUPROCAINE [Suspect]
     Indication: PREOPERATIVE CARE
     Route: 047
  8. DISCOVISC [Suspect]
  9. ADRENALINE [Concomitant]
     Dosage: UNK UKN, UNK

REACTIONS (2)
  - Toxic anterior segment syndrome [Recovered/Resolved]
  - Visual impairment [Recovered/Resolved]
